FAERS Safety Report 7666576-6 (Version None)
Quarter: 2011Q3

REPORT INFORMATION
  Report Type: 
  Country: None (occurrence: None)
  Receive Date: 20110806
  Receipt Date: 20110712
  Transmission Date: 20111222
  Serious: No
  Sender: FDA-Public Use
  Company Number: US-ABBOTT-11P-163-0838692-00

PATIENT
  Sex: Male
  Weight: 61.744 kg

DRUGS (8)
  1. LISINOPRIL [Concomitant]
     Indication: HYPERTENSION
  2. NIASPAN [Suspect]
     Indication: BLOOD CHOLESTEROL INCREASED
     Route: 048
     Dates: start: 20110401, end: 20110501
  3. ATENOLOL [Concomitant]
     Indication: ATRIAL FIBRILLATION
  4. VALACYCLOVIR [Concomitant]
     Indication: ORAL HERPES
  5. VITAMIN D [Concomitant]
     Indication: VITAMIN SUPPLEMENTATION
  6. CYMBALTA [Concomitant]
     Indication: PAIN IN EXTREMITY
  7. IBUPROFEN [Concomitant]
     Indication: PAIN
  8. AMLODIPINE [Concomitant]
     Indication: HYPERTENSION

REACTIONS (1)
  - MYALGIA [None]
